FAERS Safety Report 19059069 (Version 3)
Quarter: 2023Q2

REPORT INFORMATION
  Report Type: Spontaneous
  Country: US (occurrence: US)
  Receive Date: 20210325
  Receipt Date: 20230505
  Transmission Date: 20230722
  Serious: Yes (Other)
  Sender: FDA-Public Use
  Company Number: US-GILEAD-2021-0522287

PATIENT
  Age: 54 Year
  Sex: Male
  Weight: 93 kg

DRUGS (39)
  1. VIREAD [Suspect]
     Active Substance: TENOFOVIR DISOPROXIL FUMARATE
     Indication: HIV infection
     Dosage: UNK
     Route: 065
     Dates: start: 200111, end: 200408
  2. ATRIPLA [Suspect]
     Active Substance: EFAVIRENZ\EMTRICITABINE\TENOFOVIR DISOPROXIL FUMARATE
     Indication: HIV infection
     Dosage: UNK
     Route: 048
     Dates: start: 2006
  3. ATRIPLA [Suspect]
     Active Substance: EFAVIRENZ\EMTRICITABINE\TENOFOVIR DISOPROXIL FUMARATE
     Dosage: UNK
     Route: 048
     Dates: start: 200607, end: 20170413
  4. TRUVADA [Suspect]
     Active Substance: EMTRICITABINE\TENOFOVIR DISOPROXIL FUMARATE
     Indication: HIV infection
     Dosage: UNK
     Route: 065
     Dates: start: 200408, end: 200508
  5. BIKTARVY [Concomitant]
     Active Substance: BICTEGRAVIR SODIUM\EMTRICITABINE\TENOFOVIR ALAFENAMIDE FUMARATE
  6. DESCOVY [Concomitant]
     Active Substance: EMTRICITABINE\TENOFOVIR ALAFENAMIDE FUMARATE
  7. ISENTRESS [Concomitant]
     Active Substance: RALTEGRAVIR POTASSIUM
  8. TIVICAY [Concomitant]
     Active Substance: DOLUTEGRAVIR SODIUM
  9. ALDACTONE [Concomitant]
     Active Substance: SPIRONOLACTONE
  10. ALLEGRA [Concomitant]
     Active Substance: FEXOFENADINE HYDROCHLORIDE
  11. AMOXICILLIN [Concomitant]
     Active Substance: AMOXICILLIN
  12. ASPIRIN [Concomitant]
     Active Substance: ASPIRIN
  13. ATORVASTATIN [Concomitant]
     Active Substance: ATORVASTATIN
  14. COREG [Concomitant]
     Active Substance: CARVEDILOL
  15. CLARITHROMYCIN [Concomitant]
     Active Substance: CLARITHROMYCIN
  16. CYCLOBENZAPRINE [Concomitant]
     Active Substance: CYCLOBENZAPRINE
  17. ENTRESTO [Concomitant]
     Active Substance: SACUBITRIL\VALSARTAN
  18. LUNESTA [Concomitant]
     Active Substance: ESZOPICLONE
  19. MOMETASONE FUROATE [Concomitant]
     Active Substance: MOMETASONE FUROATE
  20. LASIX [Concomitant]
     Active Substance: FUROSEMIDE
  21. HYDROCODONE [Concomitant]
     Active Substance: HYDROCODONE
  22. LAMOTRIGINE [Concomitant]
     Active Substance: LAMOTRIGINE
  23. LEVALBUTEROL HYDROCHLORIDE [Concomitant]
     Active Substance: LEVALBUTEROL HYDROCHLORIDE
  24. LINEZOLID [Concomitant]
     Active Substance: LINEZOLID
  25. LISINOPRIL [Concomitant]
     Active Substance: LISINOPRIL
  26. ATIVAN [Concomitant]
     Active Substance: LORAZEPAM
  27. CANNABIS SATIVA SUBSP. INDICA TOP [Concomitant]
     Active Substance: CANNABIS SATIVA SUBSP. INDICA TOP
  28. MUCINEX [Concomitant]
     Active Substance: GUAIFENESIN
  29. NEURONTIN [Concomitant]
     Active Substance: GABAPENTIN
  30. NEXIUM I.V. [Concomitant]
     Active Substance: ESOMEPRAZOLE SODIUM
  31. NITROGLYCERIN [Concomitant]
     Active Substance: NITROGLYCERIN
  32. OSELTAMIVIR PHOSPHATE [Concomitant]
     Active Substance: OSELTAMIVIR PHOSPHATE
  33. LYRICA [Concomitant]
     Active Substance: PREGABALIN
  34. SPIRONOLACTONE [Concomitant]
     Active Substance: SPIRONOLACTONE
  35. SUCRALFATE [Concomitant]
     Active Substance: SUCRALFATE
  36. TESTOSTERONE [Concomitant]
     Active Substance: TESTOSTERONE
  37. TYLENOL [Concomitant]
     Active Substance: ACETAMINOPHEN
  38. FLUCONAZOLE [Concomitant]
     Active Substance: FLUCONAZOLE
  39. TESTOSTERONE [Concomitant]
     Active Substance: TESTOSTERONE

REACTIONS (22)
  - Osteoporosis [Not Recovered/Not Resolved]
  - Nephrolithiasis [Unknown]
  - Brain injury [Unknown]
  - Bone density decreased [Not Recovered/Not Resolved]
  - Emotional distress [Recovered/Resolved]
  - Anhedonia [Not Recovered/Not Resolved]
  - Anxiety [Not Recovered/Not Resolved]
  - Pain [Recovered/Resolved]
  - Glomerular filtration rate abnormal [Not Recovered/Not Resolved]
  - Osteopenia [Not Recovered/Not Resolved]
  - Vomiting [Unknown]
  - Lethargy [Unknown]
  - Pollakiuria [Unknown]
  - Kyphosis [Unknown]
  - Back pain [Unknown]
  - Gait disturbance [Unknown]
  - Depression [Unknown]
  - Temperature intolerance [Unknown]
  - Blood creatinine increased [Unknown]
  - Dyspnoea [Unknown]
  - Nausea [Unknown]
  - Bone demineralisation [Not Recovered/Not Resolved]

NARRATIVE: CASE EVENT DATE: 20140101
